FAERS Safety Report 13299367 (Version 1)
Quarter: 2017Q1

REPORT INFORMATION
  Report Type: Spontaneous
  Country: US (occurrence: US)
  Receive Date: 20170306
  Receipt Date: 20170306
  Transmission Date: 20170428
  Serious: Yes (Hospitalization, Other)
  Sender: FDA-Public Use
  Company Number: US-TEVA-744727USA

PATIENT
  Age: 21 Year
  Sex: Male

DRUGS (28)
  1. VINCRISTINE [Suspect]
     Active Substance: VINCRISTINE
     Route: 065
     Dates: start: 2015
  2. ETOPOSIDE. [Suspect]
     Active Substance: ETOPOSIDE
     Indication: B-CELL TYPE ACUTE LEUKAEMIA
     Route: 065
     Dates: start: 2014
  3. METHOTREXATE. [Suspect]
     Active Substance: METHOTREXATE
     Route: 037
     Dates: start: 2016
  4. I-ASPARGINASE [Suspect]
     Active Substance: ASPARAGINASE
     Indication: B-CELL TYPE ACUTE LEUKAEMIA
     Route: 065
  5. GANCICLOVIR. [Suspect]
     Active Substance: GANCICLOVIR
     Indication: B-CELL TYPE ACUTE LEUKAEMIA
     Route: 065
  6. 6-MP [Suspect]
     Active Substance: MERCAPTOPURINE
     Indication: B-CELL TYPE ACUTE LEUKAEMIA
     Dosage: EVERY OTHER DAY
     Route: 065
     Dates: start: 2015
  7. CYTARABINE. [Suspect]
     Active Substance: CYTARABINE
     Route: 065
     Dates: start: 2014
  8. VINCRISTINE [Suspect]
     Active Substance: VINCRISTINE
     Indication: B-CELL TYPE ACUTE LEUKAEMIA
     Route: 065
  9. DECADRON [Suspect]
     Active Substance: DEXAMETHASONE
     Route: 065
     Dates: start: 2016
  10. DAUNORUBICIN [Suspect]
     Active Substance: DAUNORUBICIN
     Indication: B-CELL TYPE ACUTE LEUKAEMIA
     Route: 065
  11. MITOXANTRONE [Suspect]
     Active Substance: MITOXANTRONE HYDROCHLORIDE
     Indication: B-CELL TYPE ACUTE LEUKAEMIA
     Route: 065
     Dates: start: 2014
  12. DEXAMETHASONE. [Suspect]
     Active Substance: DEXAMETHASONE
     Route: 065
     Dates: start: 2015
  13. CAMPATH [Suspect]
     Active Substance: ALEMTUZUMAB
     Indication: B-CELL TYPE ACUTE LEUKAEMIA
     Route: 065
     Dates: start: 2016
  14. ADRIAMYCIN [Suspect]
     Active Substance: DOXORUBICIN HYDROCHLORIDE
     Indication: B-CELL TYPE ACUTE LEUKAEMIA
     Route: 065
  15. FLUDARABINE [Suspect]
     Active Substance: FLUDARABINE PHOSPHATE
     Indication: B-CELL TYPE ACUTE LEUKAEMIA
     Route: 065
     Dates: start: 2014
  16. PREDNISONE. [Suspect]
     Active Substance: PREDNISONE
     Indication: B-CELL TYPE ACUTE LEUKAEMIA
     Route: 065
  17. RITUXIMAB [Suspect]
     Active Substance: RITUXIMAB
     Indication: B-CELL TYPE ACUTE LEUKAEMIA
     Dosage: WEEKLY X 12 WEEKS
     Route: 065
     Dates: start: 2015
  18. BLINATUMOMAB [Suspect]
     Active Substance: BLINATUMOMAB
     Indication: B-CELL TYPE ACUTE LEUKAEMIA
     Dosage: 28-DAY CYCLE
     Route: 065
     Dates: start: 2016
  19. HYDROCORTISONE. [Suspect]
     Active Substance: HYDROCORTISONE
     Indication: B-CELL TYPE ACUTE LEUKAEMIA
     Route: 065
  20. CYCLOPHOSPHAMIDE. [Suspect]
     Active Substance: CYCLOPHOSPHAMIDE
     Indication: B-CELL TYPE ACUTE LEUKAEMIA
     Route: 065
  21. BORTEZOMIB [Suspect]
     Active Substance: BORTEZOMIB
     Indication: B-CELL TYPE ACUTE LEUKAEMIA
     Dosage: WEEKLY
     Route: 058
     Dates: start: 2015
  22. METHOTREXATE. [Suspect]
     Active Substance: METHOTREXATE
     Indication: B-CELL TYPE ACUTE LEUKAEMIA
     Dosage: X2
     Route: 037
     Dates: start: 2014
  23. MELPHALAN HYDROCHLORIDE. [Suspect]
     Active Substance: MELPHALAN HYDROCHLORIDE
     Indication: B-CELL TYPE ACUTE LEUKAEMIA
     Route: 065
     Dates: start: 2016
  24. VINCRISTINE [Suspect]
     Active Substance: VINCRISTINE
     Route: 065
     Dates: start: 2016
  25. DEXAMETHASONE. [Suspect]
     Active Substance: DEXAMETHASONE
     Indication: B-CELL TYPE ACUTE LEUKAEMIA
     Route: 065
     Dates: start: 2015
  26. BLINATUMOMAB [Suspect]
     Active Substance: BLINATUMOMAB
     Dosage: ONE MORE CYCLE
     Route: 065
     Dates: start: 2016
  27. CYTARABINE. [Suspect]
     Active Substance: CYTARABINE
     Indication: B-CELL TYPE ACUTE LEUKAEMIA
     Route: 065
  28. FLUDARABINE [Suspect]
     Active Substance: FLUDARABINE PHOSPHATE
     Route: 065
     Dates: start: 2016

REACTIONS (8)
  - Bone pain [Unknown]
  - Pancytopenia [Unknown]
  - Acute lymphocytic leukaemia recurrent [Unknown]
  - Cytomegalovirus infection [Unknown]
  - Cytopenia [Unknown]
  - Fatigue [Unknown]
  - Pleuritic pain [Unknown]
  - Clostridium difficile infection [Unknown]

NARRATIVE: CASE EVENT DATE: 2014
